FAERS Safety Report 6883072-4 (Version None)
Quarter: 2010Q3

REPORT INFORMATION
  Report Type: 
  Country: None (occurrence: None)
  Receive Date: 20100727
  Receipt Date: 20100716
  Transmission Date: 20110219
  Serious: Yes (Hospitalization, Other)
  Sender: FDA-Public Use
  Company Number: A-CH2010-37919

PATIENT
  Age: 75 Year
  Sex: Female
  Weight: 48 kg

DRUGS (11)
  1. TRACLEER [Suspect]
     Indication: SKIN ULCER
     Dosage: 187 MG, QD, ORAL; 62.5 MG, QD. ORAL; 62.5 MG, QD, ORAL; 125 MG, QD, ORAL
     Route: 048
     Dates: start: 20060905, end: 20070925
  2. TRACLEER [Suspect]
     Indication: SKIN ULCER
     Dosage: 187 MG, QD, ORAL; 62.5 MG, QD. ORAL; 62.5 MG, QD, ORAL; 125 MG, QD, ORAL
     Route: 048
     Dates: start: 20080617, end: 20080901
  3. TRACLEER [Suspect]
     Indication: SKIN ULCER
     Dosage: 187 MG, QD, ORAL; 62.5 MG, QD. ORAL; 62.5 MG, QD, ORAL; 125 MG, QD, ORAL
     Route: 048
     Dates: start: 20080902, end: 20081204
  4. TRACLEER [Suspect]
     Indication: SKIN ULCER
     Dosage: 187 MG, QD, ORAL; 62.5 MG, QD. ORAL; 62.5 MG, QD, ORAL; 125 MG, QD, ORAL
     Route: 048
     Dates: start: 20081205, end: 20100601
  5. PREDNISOLONE [Suspect]
     Dates: start: 20030328
  6. BERAPROST SODIUM (BERAPROST SODIUM) [Suspect]
     Dates: start: 20040601
  7. SARPOGRELATE HYDROCHLORIDE (SARPOGRELATE HYDROCHLORIDE) [Suspect]
     Dates: start: 20040601
  8. RABEPRAZOLE SODIUM [Suspect]
     Dates: start: 20040301
  9. CANDESARTAN CILEXETIL [Suspect]
     Dates: start: 20040301
  10. ALFACALCIDOL (ALFACALCIDOL ) [Suspect]
     Dates: start: 20000101
  11. URSODIOL [Suspect]
     Dates: start: 20080201

REACTIONS (14)
  - ABDOMINAL DISTENSION [None]
  - ANAEMIA [None]
  - ASCITES [None]
  - BLOOD POTASSIUM INCREASED [None]
  - CREATININE RENAL CLEARANCE DECREASED [None]
  - HEPATIC FUNCTION ABNORMAL [None]
  - HYPOALBUMINAEMIA [None]
  - HYPOPHAGIA [None]
  - OEDEMA [None]
  - OFF LABEL USE [None]
  - PERICARDIAL EFFUSION [None]
  - PLEURAL EFFUSION [None]
  - RENAL IMPAIRMENT [None]
  - WEIGHT INCREASED [None]
